FAERS Safety Report 22243575 (Version 1)
Quarter: 2023Q2

REPORT INFORMATION
  Report Type: Spontaneous
  Country: US (occurrence: None)
  Receive Date: 20230422
  Receipt Date: 20230422
  Transmission Date: 20230722
  Serious: No
  Sender: FDA-Public Use
  Company Number: None

PATIENT
  Age: 52 Year
  Sex: Male
  Weight: 83.25 kg

DRUGS (2)
  1. AMOXICILLIN 500 MG [Suspect]
     Active Substance: AMOXICILLIN
     Indication: Tooth infection
     Dosage: OTHER QUANTITY : 1 TABLET(S);?FREQUENCY : 3 TIMES A DAY;?
     Route: 048
     Dates: start: 20230414, end: 20230420
  2. IBUPROFEN [Concomitant]
     Active Substance: IBUPROFEN

REACTIONS (1)
  - Tendon pain [None]

NARRATIVE: CASE EVENT DATE: 20230416
